FAERS Safety Report 4994236-9 (Version None)
Quarter: 2006Q2

REPORT INFORMATION
  Report Type: 
  Country: None (occurrence: None)
  Receive Date: 20060503
  Receipt Date: 20060426
  Transmission Date: 20061013
  Serious: Yes (Life-Threatening, Hospitalization)
  Sender: FDA-Public Use
  Company Number: CN-2006-004658

PATIENT
  Age: 59 Year
  Sex: Female

DRUGS (1)
  1. ULTRAVIST 300 [Suspect]
     Indication: COMPUTERISED TOMOGRAM
     Dosage: 75 ML, 1 DOSE, INTRAVENOUS
     Route: 042
     Dates: start: 20060223, end: 20060223

REACTIONS (13)
  - ANAPHYLACTIC SHOCK [None]
  - BLOOD PRESSURE IMMEASURABLE [None]
  - CONFUSIONAL STATE [None]
  - COUGH [None]
  - DEPRESSED LEVEL OF CONSCIOUSNESS [None]
  - GASTROINTESTINAL HAEMORRHAGE [None]
  - HAEMATEMESIS [None]
  - HYPOAESTHESIA [None]
  - INFECTION [None]
  - LOSS OF CONSCIOUSNESS [None]
  - PALPITATIONS [None]
  - PULSE PRESSURE DECREASED [None]
  - VOMITING [None]
